FAERS Safety Report 4411676-7 (Version None)
Quarter: 2004Q3

REPORT INFORMATION
  Report Type: 
  Country: None (occurrence: None)
  Receive Date: 20040729
  Receipt Date: 20040729
  Transmission Date: 20050211
  Serious: Yes (Hospitalization)
  Sender: FDA-Public Use
  Company Number: None

PATIENT
  Sex: Female
  Weight: 58.9676 kg

DRUGS (1)
  1. TOPAMAX [Suspect]
     Indication: MIGRAINE PROPHYLAXIS
     Dosage: 25 MG TWICE DAIL ORAL
     Route: 048
     Dates: start: 20040705, end: 20040710

REACTIONS (8)
  - ANGLE CLOSURE GLAUCOMA [None]
  - BLINDNESS [None]
  - EYE PAIN [None]
  - HEADACHE [None]
  - MYDRIASIS [None]
  - PHOTOPSIA [None]
  - PHOTOSENSITIVITY REACTION [None]
  - PUPILS UNEQUAL [None]
